FAERS Safety Report 5716791-3 (Version None)
Quarter: 2008Q2

REPORT INFORMATION
  Report Type: 
  Country: None (occurrence: None)
  Receive Date: 20080424
  Receipt Date: 20070711
  Transmission Date: 20081010
  Serious: No
  Sender: FDA-Public Use
  Company Number: US-BAYER-200712147BWH

PATIENT
  Age: 83 Year
  Sex: Male
  Weight: 136 kg

DRUGS (5)
  1. LEVITRA [Suspect]
     Indication: ERECTILE DYSFUNCTION
     Dosage: TOTAL DAILY DOSE: 5  MG  UNIT DOSE: 10 MG
     Route: 048
     Dates: start: 20070706
  2. LEVITRA [Suspect]
     Dosage: TOTAL DAILY DOSE: 10 MG  UNIT DOSE: 10 MG
     Route: 048
     Dates: start: 20070709
  3. LEVITRA [Suspect]
     Route: 048
     Dates: start: 20070701
  4. ATENOLOL [Concomitant]
  5. GLUCOPHAGE [Concomitant]

REACTIONS (1)
  - ERECTILE DYSFUNCTION [None]
